FAERS Safety Report 19427539 (Version 1)
Quarter: 2021Q2

REPORT INFORMATION
  Report Type: Spontaneous
  Country: US (occurrence: US)
  Receive Date: 20210617
  Receipt Date: 20210617
  Transmission Date: 20210717
  Serious: No
  Sender: FDA-Public Use
  Company Number: US-TEVA-2021-US-1920937

PATIENT
  Age: 54 Year
  Sex: Male

DRUGS (1)
  1. TESTOSTERONE. [Suspect]
     Active Substance: TESTOSTERONE
     Indication: BLOOD TESTOSTERONE DECREASED
     Dosage: DOSAGE FORM: SOLUTION ? TOPICAL,30 MG / 1.5 ML
     Route: 065

REACTIONS (4)
  - Fatigue [Unknown]
  - Mental disorder [Unknown]
  - Mood altered [Unknown]
  - Libido decreased [Unknown]

NARRATIVE: CASE EVENT DATE: 2021
